FAERS Safety Report 25196402 (Version 1)
Quarter: 2025Q2

REPORT INFORMATION
  Report Type: Spontaneous
  Country: US (occurrence: US)
  Receive Date: 20250415
  Receipt Date: 20250415
  Transmission Date: 20250717
  Serious: Yes (Other)
  Sender: MERCK SHARP AND DOHME
  Company Number: US-009507513-2271910

PATIENT
  Age: 16 Year
  Sex: Female

DRUGS (7)
  1. WINREVAIR [Suspect]
     Active Substance: SOTATERCEPT-CSRK
  2. WINREVAIR [Suspect]
     Active Substance: SOTATERCEPT-CSRK
  3. WINREVAIR [Suspect]
     Active Substance: SOTATERCEPT-CSRK
  4. WINREVAIR [Suspect]
     Active Substance: SOTATERCEPT-CSRK
  5. TADALAFIL [Concomitant]
     Active Substance: TADALAFIL
  6. AMBRISENTAN [Concomitant]
     Active Substance: AMBRISENTAN
  7. TREPROSTINIL [Concomitant]
     Active Substance: TREPROSTINIL

REACTIONS (6)
  - Hypoxia [Unknown]
  - Flushing [Unknown]
  - Off label use [Unknown]
  - Rash [Unknown]
  - Oxygen saturation decreased [Unknown]
  - Pulmonary vascular disorder [Unknown]
